FAERS Safety Report 25489695 (Version 1)
Quarter: 2025Q2

REPORT INFORMATION
  Report Type: Spontaneous
  Country: GB (occurrence: GB)
  Receive Date: 20250627
  Receipt Date: 20250627
  Transmission Date: 20250717
  Serious: Yes (Other)
  Sender: B. BRAUN MEDICAL INC.
  Company Number: None

PATIENT
  Age: 33 Year
  Sex: Female

DRUGS (2)
  1. METRONIDAZOLE [Suspect]
     Active Substance: METRONIDAZOLE
  2. FLUCLOXACILLIN [Suspect]
     Active Substance: FLUCLOXACILLIN

REACTIONS (2)
  - Anaphylactic shock [Unknown]
  - Drug hypersensitivity [Unknown]
